FAERS Safety Report 5011887-6 (Version None)
Quarter: 2006Q2

REPORT INFORMATION
  Report Type: 
  Country: None (occurrence: None)
  Receive Date: 20060524
  Receipt Date: 20060524
  Transmission Date: 20061013
  Serious: Yes (Other)
  Sender: FDA-Public Use
  Company Number: None

PATIENT
  Age: 74 Year
  Sex: Male
  Weight: 118.6 kg

DRUGS (2)
  1. GABAPENTIN [Suspect]
     Indication: NEUROPATHY PERIPHERAL
     Dosage: 300MG  1/2 QHS  PO
     Route: 048
     Dates: start: 20060221, end: 20060228
  2. GABAPENTIN [Suspect]
     Indication: PAIN
     Dosage: 300MG  1/2 QHS  PO
     Route: 048
     Dates: start: 20060221, end: 20060228

REACTIONS (2)
  - INSOMNIA [None]
  - NERVOUSNESS [None]
